FAERS Safety Report 6012593-1 (Version None)
Quarter: 2008Q4

REPORT INFORMATION
  Report Type: 
  Country: None (occurrence: None)
  Receive Date: 20081218
  Receipt Date: 20081211
  Transmission Date: 20090506
  Serious: Yes (Other)
  Sender: FDA-Public Use
  Company Number: US-GENENTECH-273756

PATIENT
  Sex: Male
  Weight: 111.3 kg

DRUGS (2)
  1. OMALIZUMAB [Suspect]
     Indication: ASTHMA
     Dosage: 375 MG, Q2W
     Route: 058
     Dates: start: 20050726
  2. IMMUNOTHERAPY (UNK ANTIGEN) [Concomitant]
     Indication: HYPERSENSITIVITY

REACTIONS (1)
  - RASH [None]
